FAERS Safety Report 13974612 (Version 1)
Quarter: 2017Q3

REPORT INFORMATION
  Report Type: Report from Study
  Country: ES (occurrence: ES)
  Receive Date: 20170915
  Receipt Date: 20170915
  Transmission Date: 20171128
  Serious: Yes (Death, Other)
  Sender: FDA-Public Use
  Company Number: ES-ASTRAZENECA-2017SE94204

PATIENT
  Age: 65 Year
  Sex: Male

DRUGS (3)
  1. SPIRONOLACTONE. [Interacting]
     Active Substance: SPIRONOLACTONE
     Indication: ASCITES
     Route: 048
     Dates: start: 20150918, end: 20150923
  2. FUROSEMIDE. [Concomitant]
     Active Substance: FUROSEMIDE
     Indication: ASCITES
     Dates: start: 20150826, end: 20150923
  3. CANDESARTAN CILEXETIL. [Suspect]
     Active Substance: CANDESARTAN CILEXETIL
     Indication: HYPERTENSION
     Route: 048
     Dates: start: 20101013, end: 20150923

REACTIONS (3)
  - Nodal rhythm [Recovered/Resolved]
  - Hyperkalaemia [Fatal]
  - Drug interaction [Unknown]

NARRATIVE: CASE EVENT DATE: 20150919
